FAERS Safety Report 4863847-3 (Version None)
Quarter: 2005Q4

REPORT INFORMATION
  Report Type: 
  Country: None (occurrence: None)
  Receive Date: 20051222
  Receipt Date: 20051014
  Transmission Date: 20060501
  Serious: No
  Sender: FDA-Public Use
  Company Number: US-GLAXOSMITHKLINE-A0578273A

PATIENT
  Age: 77 Year
  Sex: Female

DRUGS (8)
  1. FLONASE [Suspect]
     Dosage: 6PUFF VARIABLE DOSE
     Route: 045
  2. ASPIRIN [Concomitant]
  3. ASCORBIC ACID [Concomitant]
  4. MULTI-VITAMIN [Concomitant]
  5. LISINOPRIL [Concomitant]
  6. LEVOXYL [Concomitant]
  7. PREVACID [Concomitant]
  8. LOVASTATIN [Concomitant]

REACTIONS (2)
  - DRUG INEFFECTIVE [None]
  - INCORRECT DOSE ADMINISTERED [None]
